FAERS Safety Report 7530436-1 (Version None)
Quarter: 2011Q2

REPORT INFORMATION
  Report Type: 
  Country: None (occurrence: None)
  Receive Date: 20110607
  Receipt Date: 20110524
  Transmission Date: 20111010
  Serious: No
  Sender: FDA-Public Use
  Company Number: US-B.I. PHARMACEUTICALS,INC./RIDGEFIELD-2011-BP-12231BP

PATIENT
  Age: 80 Year
  Sex: Female

DRUGS (15)
  1. PRADAXA [Suspect]
     Indication: ATRIAL FIBRILLATION
     Dosage: 300 MG
     Route: 048
     Dates: start: 20101101
  2. RECLAST [Concomitant]
  3. POTASSIUM CHLORIDE [Concomitant]
     Route: 048
  4. VITAMIN D [Concomitant]
     Indication: OSTEOPOROSIS
     Route: 048
  5. ZOCOR [Concomitant]
     Indication: HYPERCHOLESTEROLAEMIA
     Route: 048
  6. ALTACE [Concomitant]
     Indication: HYPERTENSION
     Route: 048
  7. CALCIUM WITH D [Concomitant]
     Indication: OSTEOPOROSIS
     Route: 048
  8. LASIX [Concomitant]
     Route: 048
  9. ACIDOPHILUS [Concomitant]
     Route: 048
  10. SYNTHROID [Concomitant]
     Indication: HYPOTHYROIDISM
     Route: 048
  11. OMEPRAZOLE [Concomitant]
     Route: 048
  12. CENTRUM [Concomitant]
     Route: 048
  13. PRADAXA [Suspect]
     Indication: CEREBROVASCULAR ACCIDENT PROPHYLAXIS
  14. ASCORBIC ACID [Concomitant]
     Route: 048
  15. SOTALOL HCL [Concomitant]
     Route: 048

REACTIONS (2)
  - HEMIPARESIS [None]
  - DYSARTHRIA [None]
